FAERS Safety Report 6693343-2 (Version None)
Quarter: 2010Q2

REPORT INFORMATION
  Report Type: 
  Country: None (occurrence: None)
  Receive Date: 20100420
  Receipt Date: 20100413
  Transmission Date: 20101027
  Serious: Yes (Life-Threatening, Hospitalization)
  Sender: FDA-Public Use
  Company Number: 238380J08USA

PATIENT
  Age: 52 Year
  Sex: Female

DRUGS (13)
  1. REBIF [Suspect]
     Indication: MULTIPLE SCLEROSIS
     Dosage: 44 MCG, 3 IN 1 WK, SUBCUTANEOUS; 44 MCG, 3 IN 1 WK, SUBCUTANEOUS; 44 MCG, 3 IN 1 WEEK SUBCUTANEOUS
     Route: 058
     Dates: start: 20061206, end: 20080101
  2. REBIF [Suspect]
     Indication: MULTIPLE SCLEROSIS
     Dosage: 44 MCG, 3 IN 1 WK, SUBCUTANEOUS; 44 MCG, 3 IN 1 WK, SUBCUTANEOUS; 44 MCG, 3 IN 1 WEEK SUBCUTANEOUS
     Route: 058
     Dates: start: 20080901, end: 20081001
  3. REBIF [Suspect]
     Indication: MULTIPLE SCLEROSIS
     Dosage: 44 MCG, 3 IN 1 WK, SUBCUTANEOUS; 44 MCG, 3 IN 1 WK, SUBCUTANEOUS; 44 MCG, 3 IN 1 WEEK SUBCUTANEOUS
     Route: 058
     Dates: start: 20080101
  4. METFORMIN HCL [Concomitant]
  5. AVANDIA [Concomitant]
  6. ZOCOR (ALL OTHER THERAPEUTIC PRODUCTS) [Concomitant]
  7. SOMA [Concomitant]
  8. PERCOCET [Concomitant]
  9. UNSPECIFIED ANTI - HYPERTENSIVE (ANITHYPERTENSIVES) [Concomitant]
  10. DOXEPIX (DOXEPIN) [Concomitant]
  11. CARAFATE [Concomitant]
  12. PROTONIX [Concomitant]
  13. PLAVIX [Concomitant]

REACTIONS (10)
  - BLOOD POTASSIUM INCREASED [None]
  - CARDIAC FAILURE CONGESTIVE [None]
  - FATIGUE [None]
  - HAEMOGLOBIN DECREASED [None]
  - HYPERCAPNIA [None]
  - LOSS OF CONSCIOUSNESS [None]
  - MUSCLE SPASMS [None]
  - PALLOR [None]
  - RENAL FAILURE [None]
  - RESPIRATORY FAILURE [None]
